FAERS Safety Report 8352579-5 (Version None)
Quarter: 2012Q2

REPORT INFORMATION
  Report Type: 
  Country: None (occurrence: None)
  Receive Date: 20120511
  Receipt Date: 20120229
  Transmission Date: 20120825
  Serious: No
  Sender: FDA-Public Use
  Company Number: US-COVIDIEN/TYCO HEALTHCARE/MALLINCKRODT-T201200793

PATIENT
  Sex: Female

DRUGS (7)
  1. FENTANYL CITRATE [Concomitant]
     Dosage: 25 UG/HR, UNK
     Dates: start: 20090101, end: 20110101
  2. TEGRETOL [Concomitant]
     Dosage: UNK
  3. CLONIDINE [Concomitant]
     Dosage: UNK
  4. FENTANYL-100 [Suspect]
     Indication: MIGRAINE
     Dosage: (TWO) 75 UG/HR PATCHES, Q 48 HRS
     Route: 062
     Dates: start: 20110101
  5. FENTANYL CITRATE [Concomitant]
     Dosage: 100 UG/HR, UNK
     Dates: start: 20090101, end: 20110101
  6. KEFLEX [Concomitant]
     Dosage: UNK
  7. BACTRIM DS [Concomitant]
     Dosage: UNK
     Dates: start: 20120223, end: 20120227

REACTIONS (2)
  - CHILLS [None]
  - HYPERHIDROSIS [None]
